FAERS Safety Report 5034598-X (Version None)
Quarter: 2006Q2

REPORT INFORMATION
  Report Type: 
  Country: None (occurrence: None)
  Receive Date: 20060621
  Receipt Date: 20060609
  Transmission Date: 20061013
  Serious: Yes (Life-Threatening, Other)
  Sender: FDA-Public Use
  Company Number: 2006S1000121

PATIENT
  Age: 1 Day
  Sex: Male

DRUGS (13)
  1. INOMAX [Suspect]
     Indication: LUNG DISORDER
     Dosage: 5 PPM; INH_GAS; INH; CONT; SEE IMAGE
     Route: 055
     Dates: start: 20060609
  2. INOMAX [Suspect]
     Indication: PROPHYLAXIS
     Dosage: 5 PPM; INH_GAS; INH; CONT; SEE IMAGE
     Route: 055
     Dates: start: 20060609
  3. INOMAX [Suspect]
     Indication: LUNG DISORDER
     Dosage: 5 PPM; INH_GAS; INH; CONT; SEE IMAGE
     Route: 055
     Dates: start: 20060609
  4. INOMAX [Suspect]
     Indication: PROPHYLAXIS
     Dosage: 5 PPM; INH_GAS; INH; CONT; SEE IMAGE
     Route: 055
     Dates: start: 20060609
  5. SURVANTA [Concomitant]
  6. AMPICILLIN [Concomitant]
  7. AMIKACIN [Concomitant]
  8. DOPAMINE HCL [Concomitant]
  9. ERYTHROPOIETIN (ERYTHROPOIETIN) [Concomitant]
  10. INSULIN [Concomitant]
  11. IBUPROFEN [Concomitant]
  12. SODIUM BICARBONATE IN PLASTIC CONTAINER [Concomitant]
  13. CAFFEINE (CAFFEINE) [Concomitant]

REACTIONS (12)
  - ABDOMINAL DISTENSION [None]
  - ANAEMIA NEONATAL [None]
  - BRADYCARDIA NEONATAL [None]
  - CARDIO-RESPIRATORY ARREST NEONATAL [None]
  - HYPERGLYCAEMIA [None]
  - INTRAVENTRICULAR HAEMORRHAGE NEONATAL [None]
  - METABOLIC ACIDOSIS [None]
  - PATENT DUCTUS ARTERIOSUS [None]
  - PNEUMOTHORAX [None]
  - POST PROCEDURAL COMPLICATION [None]
  - PULMONARY INTERSTITIAL EMPHYSEMA SYNDROME [None]
  - THROMBOCYTOPENIA NEONATAL [None]
